FAERS Safety Report 5881119-5 (Version None)
Quarter: 2008Q3

REPORT INFORMATION
  Report Type: 
  Country: None (occurrence: None)
  Receive Date: 20080912
  Receipt Date: 20080619
  Transmission Date: 20090109
  Serious: No
  Sender: FDA-Public Use
  Company Number: US-ABBOTT-08P-163-0458707-00

PATIENT
  Sex: Male
  Weight: 97.61 kg

DRUGS (3)
  1. HUMIRA [Suspect]
     Indication: RHEUMATOID ARTHRITIS
     Route: 050
     Dates: start: 20060101
  2. MONOXIPRIL [Concomitant]
     Indication: BLOOD PRESSURE
     Route: 048
  3. ACETYLSALICYLIC ACID SRT [Concomitant]
     Indication: TRANSIENT ISCHAEMIC ATTACK
     Route: 048

REACTIONS (3)
  - ACCIDENTAL EXPOSURE [None]
  - INJECTION SITE PRURITUS [None]
  - INJECTION SITE SWELLING [None]
